FAERS Safety Report 16504218 (Version 1)
Quarter: 2019Q3

REPORT INFORMATION
  Report Type: Spontaneous
  Country: US (occurrence: US)
  Receive Date: 20190701
  Receipt Date: 20190701
  Transmission Date: 20191004
  Serious: Yes (Other)
  Sender: FDA-Public Use
  Company Number: US-PFIZER INC-405123

PATIENT
  Age: 78 Year
  Sex: Female
  Weight: 59 kg

DRUGS (4)
  1. BUPIVACAINE HCL [Suspect]
     Active Substance: BUPIVACAINE HYDROCHLORIDE
     Indication: LOCAL ANAESTHESIA
     Dosage: 30 ML, 0.50%
     Route: 042
  2. BUPIVACAINE HCL [Suspect]
     Active Substance: BUPIVACAINE HYDROCHLORIDE
     Indication: NERVE BLOCK
     Dosage: 0.25% AT 8 ML PER HOUR
     Route: 042
  3. CALCIUM GLUCONATE. [Concomitant]
     Active Substance: CALCIUM GLUCONATE
     Indication: ELECTROLYTE IMBALANCE
     Route: 042
  4. MAGNESIUM SULFATE. [Concomitant]
     Active Substance: MAGNESIUM SULFATE
     Indication: ELECTROLYTE IMBALANCE
     Route: 042

REACTIONS (1)
  - Atrioventricular block complete [Recovered/Resolved]
